FAERS Safety Report 5690773-2 (Version None)
Quarter: 2008Q2

REPORT INFORMATION
  Report Type: 
  Country: None (occurrence: None)
  Receive Date: 20080401
  Receipt Date: 20080325
  Transmission Date: 20081010
  Serious: Yes (Other)
  Sender: FDA-Public Use
  Company Number: A0714109A

PATIENT
  Age: 50 Year
  Sex: Male
  Weight: 76.5 kg

DRUGS (5)
  1. VALTREX [Suspect]
     Indication: HIV INFECTION
     Dosage: 1G PER DAY
     Route: 048
     Dates: start: 20070913, end: 20080227
  2. KIVEXA [Concomitant]
     Indication: HIV INFECTION
     Dosage: 1G PER DAY
     Dates: start: 20030101
  3. REYATAZ [Concomitant]
     Indication: HIV INFECTION
     Dosage: 300MG PER DAY
     Dates: start: 20030101
  4. RITONAVIR [Concomitant]
     Indication: HIV INFECTION
     Dosage: 100MG PER DAY
     Route: 048
  5. WARFARIN SODIUM [Concomitant]
     Indication: SURGERY
     Dates: start: 20010101

REACTIONS (3)
  - CYANOSIS [None]
  - LIP DISCOLOURATION [None]
  - OFF LABEL USE [None]
